APPROVED DRUG PRODUCT: HYDROCORTISONE
Active Ingredient: HYDROCORTISONE
Strength: 2.5%
Dosage Form/Route: CREAM;TOPICAL
Application: A203810 | Product #001
Applicant: ENCUBE ETHICALS PRIVATE LTD
Approved: Jul 23, 2018 | RLD: No | RS: No | Type: DISCN